FAERS Safety Report 8896310 (Version 1)
Quarter: 2012Q4

REPORT INFORMATION
  Report Type: Spontaneous
  Country: US (occurrence: None)
  Receive Date: 20121106
  Receipt Date: 20121106
  Transmission Date: 20130627
  Serious: No
  Sender: FDA-Public Use
  Company Number: None

PATIENT
  Age: 78 Year
  Sex: Male

DRUGS (4)
  1. REVLIMID [Suspect]
     Indication: MANTLE CELL LYMPHOMA
     Dosage: 25mg, qdx21d/28d, orally
     Route: 048
     Dates: start: 20120908, end: 20120927
  2. REVLIMID [Concomitant]
  3. DECADON [Concomitant]
  4. ASPIRIN [Concomitant]

REACTIONS (2)
  - Drug tolerance decreased [None]
  - Hypersensitivity [None]
